FAERS Safety Report 4595676-2 (Version None)
Quarter: 2005Q1

REPORT INFORMATION
  Report Type: 
  Country: None (occurrence: None)
  Receive Date: 20050224
  Receipt Date: 20050208
  Transmission Date: 20050727
  Serious: Yes (Hospitalization)
  Sender: FDA-Public Use
  Company Number: 10232

PATIENT
  Age: 52 Year
  Sex: Male

DRUGS (5)
  1. METHOTREXATE [Suspect]
     Indication: PSORIATIC ARTHROPATHY
     Dosage: 12.5 MG QEEKLY; PO
     Route: 048
     Dates: start: 20040115
  2. CORTICOSTEROIDS [Suspect]
     Indication: PSORIATIC ARTHROPATHY
     Dosage: 10 MG QD
  3. ETANERCEPT [Suspect]
     Indication: PSORIATIC ARTHROPATHY
     Dosage: 25 MG 2/WK, SC
     Route: 058
     Dates: start: 20040523, end: 20040902
  4. IRBESARTAN [Concomitant]
  5. ALBENCAZOLE [Concomitant]

REACTIONS (4)
  - CONDITION AGGRAVATED [None]
  - ECHINOCOCCIASIS [None]
  - MYOCARDIAL ISCHAEMIA [None]
  - TACHYCARDIA [None]
